FAERS Safety Report 5813714-3 (Version None)
Quarter: 2008Q3

REPORT INFORMATION
  Report Type: 
  Country: None (occurrence: None)
  Receive Date: 20080717
  Receipt Date: 20080707
  Transmission Date: 20090109
  Serious: Yes (Hospitalization)
  Sender: FDA-Public Use
  Company Number: FR-ROCHE-574679

PATIENT
  Sex: Female

DRUGS (2)
  1. XELODA [Suspect]
     Route: 048
     Dates: start: 20080114, end: 20080323
  2. LAPATINIB [Suspect]
     Dosage: DOSE REPORTED:1250
     Route: 048
     Dates: start: 20080114, end: 20080323

REACTIONS (1)
  - FEMUR FRACTURE [None]
